FAERS Safety Report 8201882-8 (Version None)
Quarter: 2012Q1

REPORT INFORMATION
  Report Type: 
  Country: None (occurrence: None)
  Receive Date: 20120312
  Receipt Date: 20120302
  Transmission Date: 20120608
  Serious: Yes (Hospitalization)
  Sender: FDA-Public Use
  Company Number: US-BAYER-2011-052461

PATIENT
  Age: 24 Year
  Sex: Female
  Weight: 68.027 kg

DRUGS (7)
  1. TYLENOL W/ CODEINE [Concomitant]
  2. YAZ [Suspect]
     Dosage: UNK
     Route: 048
     Dates: start: 20040101
  3. XANAX [Concomitant]
     Indication: PALPITATIONS
     Dosage: UNK
     Dates: start: 20090101
  4. PLAVIX [Concomitant]
  5. ASPIRIN [Concomitant]
  6. CHANTIX [Concomitant]
  7. DROSPIRENONE AND ETHINYL ESTRADIOL [Suspect]
     Dosage: UNK
     Route: 048
     Dates: end: 20090701

REACTIONS (10)
  - ANHEDONIA [None]
  - TRANSIENT ISCHAEMIC ATTACK [None]
  - INJURY [None]
  - DYSPNOEA [None]
  - CARDIAC DISORDER [None]
  - THROMBOSIS [None]
  - GENERAL PHYSICAL HEALTH DETERIORATION [None]
  - PAIN [None]
  - ANXIETY [None]
  - EMOTIONAL DISTRESS [None]
